APPROVED DRUG PRODUCT: CIPRO
Active Ingredient: CIPROFLOXACIN
Strength: 400MG/40ML (10MG/ML) **Federal Register determination that product was not discontinued or withdrawn for safety or effectiveness reasons**
Dosage Form/Route: INJECTABLE;INJECTION
Application: N019847 | Product #001
Applicant: BAYER HEALTHCARE PHARMACEUTICALS INC
Approved: Dec 26, 1990 | RLD: Yes | RS: No | Type: DISCN